FAERS Safety Report 6532034-5 (Version None)
Quarter: 2010Q1

REPORT INFORMATION
  Report Type: 
  Country: None (occurrence: None)
  Receive Date: 20100107
  Receipt Date: 20100107
  Transmission Date: 20100710
  Serious: Yes (Other)
  Sender: FDA-Public Use
  Company Number: None

PATIENT
  Sex: Male
  Weight: 122.4712 kg

DRUGS (1)
  1. ZYRTEC (CETIRIZINE HYDROCHLORIDE) [Suspect]
     Indication: MULTIPLE ALLERGIES
     Dosage: ONE 10 MG TABLET ONCE DAILY PO
     Route: 048
     Dates: start: 20071201, end: 20091201

REACTIONS (2)
  - PRURITUS [None]
  - WITHDRAWAL SYNDROME [None]
